FAERS Safety Report 16300207 (Version 5)
Quarter: 2020Q1

REPORT INFORMATION
  Report Type: Report from Study
  Country: US (occurrence: US)
  Receive Date: 20190510
  Receipt Date: 20200115
  Transmission Date: 20200409
  Serious: Yes (Hospitalization)
  Sender: FDA-Public Use
  Company Number: US-TAKEDA-2018TUS016219

PATIENT
  Age: 61 Year
  Sex: Female

DRUGS (1)
  1. PONATINIB [Suspect]
     Active Substance: PONATINIB
     Indication: ACUTE LYMPHOCYTIC LEUKAEMIA
     Dosage: 30 MILLIGRAM, QD
     Route: 048
     Dates: start: 20171102

REACTIONS (18)
  - Vomiting [Recovering/Resolving]
  - Deafness [Unknown]
  - Gastric disorder [Unknown]
  - Nasopharyngitis [Unknown]
  - Infection [Unknown]
  - Ear discomfort [Unknown]
  - Fatigue [Unknown]
  - Rotavirus infection [Unknown]
  - Viral infection [Unknown]
  - Dysphonia [Unknown]
  - White blood cell count increased [Unknown]
  - Myalgia [Unknown]
  - Respiratory disorder [Unknown]
  - Product dose omission [Unknown]
  - Muscular weakness [Unknown]
  - Weight increased [Unknown]
  - Head discomfort [Unknown]
  - Malaise [Unknown]

NARRATIVE: CASE EVENT DATE: 20190409
